FAERS Safety Report 7305063-1 (Version None)
Quarter: 2011Q1

REPORT INFORMATION
  Report Type: 
  Country: None (occurrence: None)
  Receive Date: 20110222
  Receipt Date: 20110126
  Transmission Date: 20110831
  Serious: No
  Sender: FDA-Public Use
  Company Number: US-B.I. PHARMACEUTICALS,INC./RIDGEFIELD-2010-BP-13408BP

PATIENT
  Age: 69 Year
  Sex: Female

DRUGS (7)
  1. SOTALOL HCL [Concomitant]
     Indication: ATRIAL FIBRILLATION
     Dosage: 160 MG
     Route: 048
     Dates: start: 20100101
  2. PRADAXA [Suspect]
     Indication: ATRIAL FIBRILLATION
     Dosage: 300 MG
     Route: 048
     Dates: start: 20101108
  3. AVAPRO [Concomitant]
     Indication: BLOOD PRESSURE
     Dosage: 75 MG
     Route: 048
     Dates: start: 20050101
  4. KLOR-CON [Concomitant]
     Indication: BLOOD POTASSIUM
     Route: 048
     Dates: start: 20100101
  5. PRILOSEC [Concomitant]
     Indication: DYSPEPSIA
     Route: 048
     Dates: start: 20100101
  6. FUROSEMIDE [Concomitant]
     Indication: POLYURIA
     Dosage: 20 MG
     Route: 048
     Dates: start: 20100101
  7. LORAZEPAM [Concomitant]
     Indication: ANXIETY
     Route: 048
     Dates: start: 20100101

REACTIONS (2)
  - PRURITUS [None]
  - MALAISE [None]
